FAERS Safety Report 6834902-3 (Version None)
Quarter: 2010Q3

REPORT INFORMATION
  Report Type: 
  Country: None (occurrence: None)
  Receive Date: 20100712
  Receipt Date: 20070424
  Transmission Date: 20110219
  Serious: No
  Sender: FDA-Public Use
  Company Number: US-PFIZER INC-2007034422

PATIENT
  Sex: Male
  Weight: 52.16 kg

DRUGS (4)
  1. CHANTIX [Suspect]
     Indication: SMOKING CESSATION THERAPY
     Route: 048
     Dates: start: 20070306
  2. VITAMIN B-12 [Concomitant]
  3. ATENOLOL [Concomitant]
  4. NEXIUM [Concomitant]

REACTIONS (2)
  - ABNORMAL DREAMS [None]
  - POOR QUALITY SLEEP [None]
